FAERS Safety Report 20733481 (Version 1)
Quarter: 2022Q2

REPORT INFORMATION
  Report Type: Spontaneous
  Country: DE (occurrence: DE)
  Receive Date: 20220421
  Receipt Date: 20220421
  Transmission Date: 20220721
  Serious: Yes (Other)
  Sender: FDA-Public Use
  Company Number: DE-SUN PHARMACEUTICAL INDUSTRIES LTD-2022RR-330735

PATIENT
  Sex: Female
  Weight: 65 kg

DRUGS (3)
  1. GANIRELIX ACETATE [Suspect]
     Active Substance: GANIRELIX ACETATE
     Indication: Infertility female
     Dosage: 0.25 MG/0.5 ML, QD
     Route: 042
     Dates: start: 20220217, end: 20220228
  2. MENOTROPINS [Concomitant]
     Active Substance: MENOTROPINS
     Indication: Infertility female
     Dosage: 1X PER DAY
     Route: 065
     Dates: start: 20220215, end: 20220228
  3. GONAL-F [Concomitant]
     Active Substance: FOLLITROPIN
     Indication: Infertility female
     Dosage: 1X PER DAY
     Route: 065
     Dates: start: 20220215, end: 20220228

REACTIONS (2)
  - Drug ineffective [Unknown]
  - Premature ovulation [Unknown]

NARRATIVE: CASE EVENT DATE: 20220217
